FAERS Safety Report 9473538 (Version 2)
Quarter: 2013Q3

REPORT INFORMATION
  Report Type: Spontaneous
  Country: US (occurrence: US)
  Receive Date: 20130823
  Receipt Date: 20130823
  Transmission Date: 20140515
  Serious: No
  Sender: FDA-Public Use
  Company Number: US-GALDERMA-US13001705

PATIENT
  Age: 81 Year
  Sex: Female

DRUGS (8)
  1. METROGEL (METRONIDAZOLE) GEL, 1% [Suspect]
     Indication: ROSACEA
     Dosage: 1%
     Route: 061
     Dates: start: 20130529, end: 20130530
  2. CAMAY SOAP [Concomitant]
     Indication: THERAPEUTIC SKIN CARE TOPICAL
     Route: 061
  3. NEUTROGENA SUNBLOCK [Concomitant]
     Indication: PROPHYLAXIS AGAINST SOLAR RADIATION
     Route: 061
  4. LOVASTATIN [Concomitant]
     Route: 048
     Dates: start: 201301
  5. ASPIRIN [Concomitant]
     Route: 048
  6. SYNTHROID [Concomitant]
     Route: 048
  7. BENAZEPRIL [Concomitant]
     Route: 048
  8. SILVER CENTRUM VITAMIN [Concomitant]
     Route: 048

REACTIONS (2)
  - Rash [Recovered/Resolved]
  - Skin burning sensation [Recovering/Resolving]
